FAERS Safety Report 18866161 (Version 3)
Quarter: 2021Q2

REPORT INFORMATION
  Report Type: Report from Study
  Country: BR (occurrence: BR)
  Receive Date: 20210208
  Receipt Date: 20210430
  Transmission Date: 20210717
  Serious: Yes (Death, Other)
  Sender: FDA-Public Use
  Company Number: BR-GILEAD-2021-0514173

PATIENT
  Age: 58 Year
  Sex: Male
  Weight: 92 kg

DRUGS (105)
  1. CEFTRIAXONE. [Concomitant]
     Active Substance: CEFTRIAXONE
     Indication: COVID-19 PNEUMONIA
     Dosage: UNK
     Dates: start: 20201215, end: 20201221
  2. INSULIN HUMAN [Concomitant]
     Active Substance: INSULIN HUMAN
     Dosage: 20 IU
     Dates: start: 20201222, end: 20210117
  3. AMINOPHYLLINE. [Concomitant]
     Active Substance: AMINOPHYLLINE
     Indication: COVID-19 PNEUMONIA
     Dosage: 1 AMPULE
     Dates: start: 20201223, end: 20201223
  4. AMICACINA [AMIKACIN] [Concomitant]
     Indication: ANTIBIOTIC THERAPY
     Dosage: 1500 MG
     Dates: start: 20201225, end: 20210103
  5. DIAZEPAM. [Concomitant]
     Active Substance: DIAZEPAM
     Indication: ANXIETY
     Dosage: 10 MG
     Dates: start: 20201226, end: 20210106
  6. CALCIUM POLYSTYRENE SULFONATE [Concomitant]
     Active Substance: CALCIUM POLYSTYRENE SULFONATE
     Indication: HYPERKALAEMIA
     Dosage: 30 MG
     Dates: start: 20201227, end: 20201230
  7. VASOPRESSIN. [Concomitant]
     Active Substance: VASOPRESSIN
     Indication: SEDATION
     Dosage: 2 AMPULE
     Dates: start: 20210115, end: 20210117
  8. OXYGEN. [Concomitant]
     Active Substance: OXYGEN
     Dosage: 10 L/MIN
     Route: 055
     Dates: start: 20201217
  9. OXYGEN. [Concomitant]
     Active Substance: OXYGEN
     Dosage: 5 L/MIN
     Route: 055
     Dates: start: 20201226
  10. OXYGEN. [Concomitant]
     Active Substance: OXYGEN
     Dosage: 15 L/MIN
     Route: 055
     Dates: start: 20201218
  11. FUROSEMIDE. [Concomitant]
     Active Substance: FUROSEMIDE
     Indication: HYPOKALAEMIA
     Dosage: 40 MG, QD
     Dates: start: 20210102, end: 20210107
  12. POTASSIUM CHLORIDE. [Concomitant]
     Active Substance: POTASSIUM CHLORIDE
     Indication: HYPOKALAEMIA
     Dosage: 10 ML
     Dates: start: 20210111, end: 20210113
  13. ENOXAPARIN [Concomitant]
     Active Substance: ENOXAPARIN
     Indication: THROMBOSIS PROPHYLAXIS
  14. SCOPOLAMINE [HYOSCINE] [Concomitant]
     Active Substance: SCOPOLAMINE
     Indication: ABDOMINAL PAIN
     Dosage: 1 AMPULE
     Dates: start: 20201231, end: 20210106
  15. BROMOPRIDE [Concomitant]
     Active Substance: BROMOPRIDE
     Indication: CONSTIPATION
     Dosage: 1 AMPULE
     Dates: start: 20210109, end: 20210117
  16. OXYGEN. [Concomitant]
     Active Substance: OXYGEN
     Dosage: 10 L/MIN
     Route: 055
     Dates: start: 20201217
  17. OXYGEN. [Concomitant]
     Active Substance: OXYGEN
     Dosage: 15 L/MIN
     Route: 055
     Dates: start: 20201221
  18. OXYGEN. [Concomitant]
     Active Substance: OXYGEN
     Dosage: 15 L/MIN
     Route: 055
     Dates: start: 20210112
  19. OXYGEN. [Concomitant]
     Active Substance: OXYGEN
     Dosage: 10 L/MIN
     Route: 055
     Dates: start: 20201229
  20. OXYGEN. [Concomitant]
     Active Substance: OXYGEN
     Dosage: 2 L/MIN
     Route: 055
     Dates: start: 20201229
  21. OXYGEN. [Concomitant]
     Active Substance: OXYGEN
     Dosage: 100 %
     Route: 007
     Dates: start: 20210114
  22. OXYGEN. [Concomitant]
     Active Substance: OXYGEN
     Dosage: 5 L/MIN
     Route: 055
     Dates: start: 20210106
  23. FUROSEMIDE. [Concomitant]
     Active Substance: FUROSEMIDE
     Dosage: 10 ML
     Dates: start: 20210111, end: 20210113
  24. OMEPRAZOLE. [Concomitant]
     Active Substance: OMEPRAZOLE
     Indication: PROPHYLAXIS
     Dosage: 20 MG
     Dates: start: 20201215, end: 20210108
  25. ENALAPRIL [Concomitant]
     Active Substance: ENALAPRIL
     Indication: HYPERTENSION
     Dosage: 10 MG
     Dates: start: 20201215, end: 20201220
  26. METHYLPREDNISOLONE. [Concomitant]
     Active Substance: METHYLPREDNISOLONE
     Indication: COVID-19 PNEUMONIA
     Dosage: 125 MG
     Dates: start: 20201215, end: 20210101
  27. SIMETHICONE (DIMETHICONE) [Concomitant]
     Active Substance: DIMETHICONE
     Dates: start: 20201231, end: 20210106
  28. PREDNISONE. [Concomitant]
     Active Substance: PREDNISONE
     Dosage: 5 MG
     Dates: start: 20210108, end: 20210113
  29. CISATRACURIO [Concomitant]
     Indication: SEDATION
     Dosage: 4 MG
     Dates: start: 20210108, end: 20210117
  30. TRANEXAMIC ACID. [Concomitant]
     Active Substance: TRANEXAMIC ACID
     Indication: PULMONARY EMBOLISM
     Dosage: 5 ML
     Dates: start: 20210112, end: 20210113
  31. OXYGEN. [Concomitant]
     Active Substance: OXYGEN
     Dosage: 100 %
     Route: 007
     Dates: start: 20210111
  32. OXYGEN. [Concomitant]
     Active Substance: OXYGEN
     Dosage: 6 L/MIN
     Route: 055
     Dates: start: 20210105
  33. OXYGEN. [Concomitant]
     Active Substance: OXYGEN
     Dosage: 100 %
     Route: 007
     Dates: start: 20210112
  34. OXYGEN. [Concomitant]
     Active Substance: OXYGEN
     Dosage: 6 L/MIN
     Route: 055
     Dates: start: 20210103
  35. OXYGEN. [Concomitant]
     Active Substance: OXYGEN
     Dosage: 100 %
     Route: 007
     Dates: start: 20210113
  36. OXYGEN. [Concomitant]
     Active Substance: OXYGEN
     Dosage: 10 L/MIN
     Route: 055
     Dates: start: 20201221
  37. REMDESIVIR. [Suspect]
     Active Substance: REMDESIVIR
     Indication: COVID-19 PNEUMONIA
     Dosage: 250 ML, QD
     Route: 042
     Dates: start: 20201217, end: 20210117
  38. TOCILIZUMAB. [Suspect]
     Active Substance: TOCILIZUMAB
     Indication: COVID-19 PNEUMONIA
     Dosage: 8 MG/KG
     Route: 042
     Dates: start: 20201217
  39. OMEPRAZOLE. [Concomitant]
     Active Substance: OMEPRAZOLE
     Indication: GASTROINTESTINAL DISORDER PROPHYLAXIS
     Dosage: 1 AMPULE
     Dates: start: 20210113, end: 20210117
  40. SALBUTAMOL [Concomitant]
     Active Substance: ALBUTEROL
     Indication: COVID-19 PNEUMONIA
     Dosage: 200 OTHER
     Dates: start: 20201215, end: 20210117
  41. LACTULOSE. [Concomitant]
     Active Substance: LACTULOSE
     Indication: CONSTIPATION
     Dosage: 20 ML
     Dates: start: 20201221, end: 20201226
  42. LACTULOSE. [Concomitant]
     Active Substance: LACTULOSE
     Dosage: 20 ML
     Dates: start: 20201231, end: 20210117
  43. QUETIAPINE. [Concomitant]
     Active Substance: QUETIAPINE
     Indication: SEDATION
     Dosage: 25 MG
     Dates: start: 20201223, end: 20201229
  44. POLYMYXIN B. [Concomitant]
     Active Substance: POLYMYXIN B
     Indication: ANTIBIOTIC THERAPY
     Dosage: 2 AMPULE
     Dates: start: 20201225, end: 20210103
  45. FUROSEMIDA [FUROSEMIDE] [Concomitant]
     Active Substance: FUROSEMIDE
     Dosage: 20 MG
     Dates: start: 20201226, end: 20210102
  46. PROPOFOL. [Concomitant]
     Active Substance: PROPOFOL
     Dosage: 100 ML
     Dates: start: 20210108, end: 20210117
  47. POLIMIXINA B [POLYMYXIN B] [Concomitant]
     Indication: COVID-19 PNEUMONIA
     Dosage: 3 AMPULE
     Dates: start: 20210106, end: 20210117
  48. OXYGEN. [Concomitant]
     Active Substance: OXYGEN
     Dosage: 6 L/MIN
     Route: 055
     Dates: start: 20210105
  49. OXYGEN. [Concomitant]
     Active Substance: OXYGEN
     Dosage: 100 %
     Route: 007
     Dates: start: 20210109
  50. OXYGEN. [Concomitant]
     Active Substance: OXYGEN
     Dosage: 6 L/MIN
     Route: 055
     Dates: start: 20210104
  51. AZITROMYCIN [Concomitant]
     Active Substance: AZITHROMYCIN ANHYDROUS
     Indication: COVID-19 PNEUMONIA
     Dosage: UNK
     Dates: start: 20201215, end: 20201220
  52. ASA [Concomitant]
     Active Substance: ASPIRIN
     Dosage: 100 MG
     Dates: start: 2017, end: 20210116
  53. SIMVASTATIN. [Concomitant]
     Active Substance: SIMVASTATIN
     Indication: ACUTE MYOCARDIAL INFARCTION
     Dosage: UNK
     Dates: start: 2017, end: 20210117
  54. AMLODIPINE [Concomitant]
     Active Substance: AMLODIPINE BESYLATE
     Indication: HYPOTENSION
     Dosage: 5 MG
     Dates: start: 20201220, end: 20210108
  55. AMINOPHYLLINE. [Concomitant]
     Active Substance: AMINOPHYLLINE
     Dosage: 240 MG
     Dates: start: 20210107, end: 20210109
  56. PREDNISONE. [Concomitant]
     Active Substance: PREDNISONE
     Dosage: 20 MG, QD
     Dates: start: 20210105, end: 20210115
  57. HYDROCORTISONE. [Concomitant]
     Active Substance: HYDROCORTISONE
     Dosage: 50 MG
     Dates: start: 20210115, end: 20210117
  58. ROCURONIO [Concomitant]
     Active Substance: ROCURONIUM BROMIDE
     Indication: SEDATION
     Dosage: 1 ML
     Dates: start: 20210108, end: 20210108
  59. OXYGEN. [Concomitant]
     Active Substance: OXYGEN
     Dosage: 10 L/MIN
     Route: 055
     Dates: start: 20201217
  60. OXYGEN. [Concomitant]
     Active Substance: OXYGEN
     Dosage: 15 L/MIN
     Route: 055
     Dates: start: 20210102
  61. OXYGEN. [Concomitant]
     Active Substance: OXYGEN
     Dosage: 5 L/MIN
     Route: 055
     Dates: start: 20210107
  62. OXYGEN. [Concomitant]
     Active Substance: OXYGEN
     Dosage: 15 L/MIN
     Route: 055
     Dates: start: 20201224
  63. OXYGEN. [Concomitant]
     Active Substance: OXYGEN
     Dosage: 7 L/MIN
     Route: 055
     Dates: start: 20201227
  64. OXYGEN. [Concomitant]
     Active Substance: OXYGEN
     Dosage: 4 L/MIN
     Route: 055
     Dates: start: 20201228
  65. OXYGEN. [Concomitant]
     Active Substance: OXYGEN
     Dosage: 100 %
     Route: 007
     Dates: start: 20210116
  66. OXYGEN. [Concomitant]
     Active Substance: OXYGEN
     Dosage: 100 %
     Route: 007
     Dates: start: 20210115
  67. FUROSEMIDE. [Concomitant]
     Active Substance: FUROSEMIDE
     Dosage: 1 AMPULE
     Dates: start: 20210113, end: 20210117
  68. CEFTRIAXONE. [Concomitant]
     Active Substance: CEFTRIAXONE
     Dosage: 1 G
     Dates: start: 20201215, end: 20201221
  69. ASA [Concomitant]
     Active Substance: ASPIRIN
     Indication: ACUTE MYOCARDIAL INFARCTION
     Dosage: UNK
     Dates: start: 2017, end: 20210116
  70. ENALAPRIL [Concomitant]
     Active Substance: ENALAPRIL
     Indication: HYPERTENSION
     Dosage: UNK
     Dates: start: 20201215, end: 20201220
  71. ENOXAPARIN [Concomitant]
     Active Substance: ENOXAPARIN
     Indication: PROPHYLAXIS
     Dosage: 40 MG
     Dates: start: 20201215, end: 20210115
  72. HYDRALAZINE [Concomitant]
     Active Substance: HYDRALAZINE HYDROCHLORIDE
     Dosage: 25 MG
     Dates: start: 20201220, end: 20210108
  73. FUROSEMIDA [FUROSEMIDE] [Concomitant]
     Active Substance: FUROSEMIDE
     Dosage: 10 MG
     Dates: start: 20201221, end: 20201225
  74. NOREPINEPHRINE. [Concomitant]
     Active Substance: NOREPINEPHRINE
     Dosage: 16 MG
     Dates: start: 20210108, end: 20210117
  75. MIDAZOLAM. [Concomitant]
     Active Substance: MIDAZOLAM
     Dosage: 10 MG
     Dates: start: 20210108, end: 20210117
  76. AMIKACIN. [Concomitant]
     Active Substance: AMIKACIN
     Indication: ANTIBIOTIC THERAPY
     Dosage: 600 MG
     Dates: start: 20210116, end: 20210117
  77. OXYGEN. [Concomitant]
     Active Substance: OXYGEN
     Dosage: 100 %
     Route: 007
     Dates: start: 20210114
  78. TOCILIZUMAB. [Suspect]
     Active Substance: TOCILIZUMAB
     Dosage: UNK
     Route: 042
  79. MAGNESIUM SULFATE. [Concomitant]
     Active Substance: MAGNESIUM SULFATE
     Indication: DYSPNOEA
     Dosage: 20 ML
     Dates: start: 20210107, end: 20210107
  80. SODIUM CHLORIDE. [Concomitant]
     Active Substance: SODIUM CHLORIDE
     Dosage: 10 ML
     Dates: start: 20201226, end: 20201231
  81. HYDROCORTISONE. [Concomitant]
     Active Substance: HYDROCORTISONE
     Dosage: 300 MG
     Dates: start: 20210107, end: 20210107
  82. FENTANIL [Concomitant]
     Active Substance: FENTANYL
     Indication: SEDATION
     Dosage: 50 ML
     Dates: start: 20210108, end: 20210117
  83. OXYGEN. [Concomitant]
     Active Substance: OXYGEN
     Dosage: 6 L/MIN
     Route: 055
     Dates: start: 20210106
  84. OXYGEN. [Concomitant]
     Active Substance: OXYGEN
     Dosage: 100 %
     Route: 007
     Dates: start: 20210112
  85. OXYGEN. [Concomitant]
     Active Substance: OXYGEN
     Dosage: 100 %
     Route: 007
     Dates: start: 20210110
  86. OXYGEN. [Concomitant]
     Active Substance: OXYGEN
     Dosage: 15 L/MIN
     Route: 055
     Dates: start: 20201220
  87. OXYGEN. [Concomitant]
     Active Substance: OXYGEN
     Dosage: 10 L/MIN
     Route: 055
     Dates: start: 20210103
  88. OXYGEN. [Concomitant]
     Active Substance: OXYGEN
     Dosage: 6 L/MIN
     Route: 055
     Dates: start: 20201230
  89. OXYGEN. [Concomitant]
     Active Substance: OXYGEN
     Dosage: 5 L/MIN
     Route: 055
     Dates: start: 20200101
  90. OXYGEN. [Concomitant]
     Active Substance: OXYGEN
     Dosage: 5 L/MIN
     Route: 055
     Dates: start: 20201225
  91. IVERMECTIN. [Concomitant]
     Active Substance: IVERMECTIN
     Indication: COVID-19 PNEUMONIA
     Dosage: 18 MG
     Dates: start: 20201217, end: 20201217
  92. AZITROMYCIN [Concomitant]
     Active Substance: AZITHROMYCIN ANHYDROUS
     Dosage: 500 MG
     Dates: start: 20201215, end: 20201220
  93. SIMVASTATIN. [Concomitant]
     Active Substance: SIMVASTATIN
     Dosage: 20 MG
     Dates: start: 2017, end: 20210117
  94. MINERAL OIL. [Concomitant]
     Active Substance: MINERAL OIL
     Indication: CONSTIPATION
     Dosage: 10 ML
     Dates: start: 20201221, end: 20210106
  95. MAGNESIUM SULFATE. [Concomitant]
     Active Substance: MAGNESIUM SULFATE
     Indication: COVID-19 PNEUMONIA
     Dosage: 2 AMPULE
     Dates: start: 20201223, end: 20201223
  96. FUROSEMIDA [FUROSEMIDE] [Concomitant]
     Active Substance: FUROSEMIDE
     Dosage: 4 AMPULE
     Dates: start: 20201226, end: 20201226
  97. GLICERINA [Concomitant]
     Indication: CONSTIPATION
     Dosage: 500 ML
     Dates: start: 20201228, end: 20201228
  98. BROMOPRIDA [Concomitant]
     Indication: CONSTIPATION
     Dosage: 1 CAPSULE
     Dates: start: 20201231, end: 20210106
  99. PREDNISONE. [Concomitant]
     Active Substance: PREDNISONE
     Dosage: 40 MG, QD
     Dates: start: 20210101, end: 20210105
  100. OXYGEN. [Concomitant]
     Active Substance: OXYGEN
     Dosage: 6 L/MIN
     Route: 055
     Dates: start: 20210104
  101. OXYGEN. [Concomitant]
     Active Substance: OXYGEN
     Dosage: 100 %
     Route: 007
     Dates: start: 20210109
  102. OXYGEN. [Concomitant]
     Active Substance: OXYGEN
     Dosage: 100 %
     Route: 007
     Dates: start: 20210110
  103. OXYGEN. [Concomitant]
     Active Substance: OXYGEN
     Dosage: 100 %
     Route: 007
     Dates: start: 20210111
  104. OXYGEN. [Concomitant]
     Active Substance: OXYGEN
     Dosage: 15 L/MIN
     Route: 055
     Dates: start: 20200108
  105. FUROSEMIDE. [Concomitant]
     Active Substance: FUROSEMIDE
     Dosage: 20 MG
     Dates: start: 20210109, end: 20210112

REACTIONS (2)
  - Liver injury [Recovered/Resolved]
  - COVID-19 pneumonia [Fatal]

NARRATIVE: CASE EVENT DATE: 20201226
